FAERS Safety Report 16450993 (Version 1)
Quarter: 2019Q3

REPORT INFORMATION
  Report Type: Spontaneous
  Country: US (occurrence: US)
  Receive Date: 20190618
  Receipt Date: 20190618
  Transmission Date: 20191004
  Serious: Yes (Disabling)
  Sender: FDA-Public Use
  Company Number: None

PATIENT
  Age: 45 Year
  Sex: Female

DRUGS (1)
  1. XEOMIN [Suspect]
     Active Substance: INCOBOTULINUMTOXINA
     Indication: SKIN COSMETIC PROCEDURE
     Dosage: ?          QUANTITY:6 UNITS;OTHER FREQUENCY:ONCE;?
     Route: 058
     Dates: start: 20190614, end: 20190614

REACTIONS (4)
  - Malaise [None]
  - Hypoaesthesia [None]
  - Asthenia [None]
  - Muscular weakness [None]

NARRATIVE: CASE EVENT DATE: 20190614
